FAERS Safety Report 5713832-4 (Version None)
Quarter: 2008Q2

REPORT INFORMATION
  Report Type: 
  Country: None (occurrence: None)
  Receive Date: 20080421
  Receipt Date: 20080327
  Transmission Date: 20081010
  Serious: Yes (Death)
  Sender: FDA-Public Use
  Company Number: 1-15945249

PATIENT

DRUGS (1)
  1. PHENERGAN [Suspect]

REACTIONS (2)
  - ANAPHYLACTIC REACTION [None]
  - SUDDEN DEATH [None]
